FAERS Safety Report 5798552-2 (Version None)
Quarter: 2008Q2

REPORT INFORMATION
  Report Type: 
  Country: None (occurrence: None)
  Receive Date: 20080630
  Receipt Date: 20080613
  Transmission Date: 20081010
  Serious: Yes (Hospitalization)
  Sender: FDA-Public Use
  Company Number: DSA_32037_2008

PATIENT
  Sex: Female

DRUGS (8)
  1. TAVOR /00273201/ (TAVOR - LORAZEPAM)  (2 MG, 1.5 MG, 1 MG, 0.5 MG) (NO [Suspect]
     Indication: SCHIZOPHRENIA, PARANOID TYPE
     Dosage: 2 MG ORAL; 1.5MG QD ORAL; 1 MG QD ORAL; 0.5MG ORAL
     Route: 048
     Dates: start: 20070926, end: 20071002
  2. TAVOR /00273201/ (TAVOR - LORAZEPAM)  (2 MG, 1.5 MG, 1 MG, 0.5 MG) (NO [Suspect]
     Indication: SCHIZOPHRENIA, PARANOID TYPE
     Dosage: 2 MG ORAL; 1.5MG QD ORAL; 1 MG QD ORAL; 0.5MG ORAL
     Route: 048
     Dates: start: 20071003, end: 20071008
  3. TAVOR /00273201/ (TAVOR - LORAZEPAM)  (2 MG, 1.5 MG, 1 MG, 0.5 MG) (NO [Suspect]
     Indication: SCHIZOPHRENIA, PARANOID TYPE
     Dosage: 2 MG ORAL; 1.5MG QD ORAL; 1 MG QD ORAL; 0.5MG ORAL
     Route: 048
     Dates: start: 20071009, end: 20071010
  4. TAVOR /00273201/ (TAVOR - LORAZEPAM)  (2 MG, 1.5 MG, 1 MG, 0.5 MG) (NO [Suspect]
     Indication: SCHIZOPHRENIA, PARANOID TYPE
     Dosage: 2 MG ORAL; 1.5MG QD ORAL; 1 MG QD ORAL; 0.5MG ORAL
     Route: 048
     Dates: start: 20071011, end: 20071014
  5. RISPERDAL [Suspect]
     Indication: SCHIZOPHRENIA, PARANOID TYPE
     Dosage: 2 MG QD ORAL; 4 MG QD ORAL; 2 MG QD ORAL
     Route: 048
     Dates: start: 20070928, end: 20071001
  6. RISPERDAL [Suspect]
     Indication: SCHIZOPHRENIA, PARANOID TYPE
     Dosage: 2 MG QD ORAL; 4 MG QD ORAL; 2 MG QD ORAL
     Route: 048
     Dates: start: 20071002, end: 20071023
  7. RISPERDAL [Suspect]
     Indication: SCHIZOPHRENIA, PARANOID TYPE
     Dosage: 2 MG QD ORAL; 4 MG QD ORAL; 2 MG QD ORAL
     Route: 048
     Dates: start: 20071024, end: 20071029
  8. MOVICOL /01749801/ [Concomitant]

REACTIONS (4)
  - ALANINE AMINOTRANSFERASE INCREASED [None]
  - ASPARTATE AMINOTRANSFERASE INCREASED [None]
  - BLOOD POTASSIUM DECREASED [None]
  - HEPATIC STEATOSIS [None]
